FAERS Safety Report 8126457-0 (Version None)
Quarter: 2012Q1

REPORT INFORMATION
  Report Type: 
  Country: None (occurrence: None)
  Receive Date: 20120209
  Receipt Date: 20120131
  Transmission Date: 20120608
  Serious: Yes (Hospitalization)
  Sender: FDA-Public Use
  Company Number: CA-ASTRAZENECA-2011SE16681

PATIENT
  Age: 80 Year
  Sex: Male

DRUGS (3)
  1. CASODEX [Suspect]
     Route: 048
     Dates: start: 20000101, end: 20100101
  2. BLOOD PRESSURE MEDICATION [Concomitant]
  3. ZOLADEX [Suspect]
     Route: 058
     Dates: start: 20000101, end: 20110101

REACTIONS (2)
  - PRURITUS [None]
  - SPLENIC NEOPLASM MALIGNANCY UNSPECIFIED [None]
